FAERS Safety Report 11116802 (Version 3)
Quarter: 2015Q3

REPORT INFORMATION
  Report Type: Spontaneous
  Country: US (occurrence: US)
  Receive Date: 20150515
  Receipt Date: 20150930
  Transmission Date: 20151125
  Serious: Yes (Hospitalization, Other)
  Sender: FDA-Public Use
  Company Number: US-009507513-1505USA004581

PATIENT
  Sex: Female
  Weight: 77.98 kg

DRUGS (4)
  1. BONIVA [Suspect]
     Active Substance: IBANDRONATE SODIUM
     Indication: OSTEOPOROSIS
     Dosage: 150 MG, QM
     Route: 048
     Dates: start: 2006, end: 2011
  2. RECLAST [Suspect]
     Active Substance: ZOLEDRONIC ACID
     Indication: OSTEOPOROSIS
     Dosage: UNK
     Route: 042
     Dates: start: 2011, end: 2013
  3. CALCIUM (UNSPECIFIED) [Concomitant]
     Active Substance: CALCIUM
     Indication: CALCIUM DEFICIENCY
     Dosage: 1200 MG, QD
     Route: 065
     Dates: start: 1998
  4. FOSAMAX [Suspect]
     Active Substance: ALENDRONATE SODIUM
     Indication: OSTEOPOROSIS
     Dosage: 70 MG, QW
     Route: 048
     Dates: start: 2002, end: 2006

REACTIONS (11)
  - Femur fracture [Recovered/Resolved with Sequelae]
  - Limb discomfort [Unknown]
  - Tonsillectomy [Unknown]
  - Adenoidectomy [Unknown]
  - Impaired healing [Recovered/Resolved]
  - Osteoarthritis [Unknown]
  - Arthralgia [Unknown]
  - Fall [Recovered/Resolved]
  - Foot fracture [Recovered/Resolved]
  - Hypertension [Unknown]
  - Gastrointestinal disorder [Unknown]

NARRATIVE: CASE EVENT DATE: 20030930
